FAERS Safety Report 5156780-3 (Version None)
Quarter: 2006Q4

REPORT INFORMATION
  Report Type: 
  Country: None (occurrence: None)
  Receive Date: 20061115
  Receipt Date: 20061102
  Transmission Date: 20070319
  Serious: Yes (Hospitalization)
  Sender: FDA-Public Use
  Company Number: 15139

PATIENT
  Age: 74 Year
  Sex: Male
  Weight: 93.441 kg

DRUGS (11)
  1. FLUOROURACIL [Suspect]
     Indication: CARCINOID TUMOUR
     Dosage: 1200 MG/M2 QD IV
     Route: 042
     Dates: start: 20060712, end: 20060927
  2. LEUCOVORIN [Suspect]
     Indication: CARCINOID TUMOUR
     Dosage: 200 MG/M2 PER CYCLE IV
     Route: 042
     Dates: start: 20060712, end: 20060927
  3. OXALIPLATIN [Suspect]
     Indication: CARCINOID TUMOUR
     Dosage: 85 MG/M2 PER CYCLE IV
     Route: 042
     Dates: start: 20060712, end: 20060927
  4. BEVACIZUMAB [Suspect]
     Indication: CARCINOID TUMOUR
     Dosage: 5 MG/KG PER CYCLE IV
     Route: 042
     Dates: start: 20060712, end: 20060927
  5. OCTREOTIDE ACETATE [Concomitant]
  6. FUROSEMIDE [Concomitant]
  7. ACYCLOVIR [Concomitant]
  8. SPIRONOLACTONE [Concomitant]
  9. DARBEPOETIN ALFA [Concomitant]
  10. LOPERAMIDE [Concomitant]
  11. DIPHENOXYLATE W/ATROPINE SULFATE [Concomitant]

REACTIONS (6)
  - ASCITES [None]
  - DISEASE PROGRESSION [None]
  - FAILURE TO THRIVE [None]
  - HAEMOGLOBIN DECREASED [None]
  - LIVER FUNCTION TEST ABNORMAL [None]
  - PERFORMANCE STATUS DECREASED [None]
